FAERS Safety Report 6763903-9 (Version None)
Quarter: 2010Q2

REPORT INFORMATION
  Report Type: 
  Country: None (occurrence: None)
  Receive Date: 20100608
  Receipt Date: 20100524
  Transmission Date: 20101027
  Serious: Yes (Life-Threatening, Hospitalization, Disabling, Other)
  Sender: FDA-Public Use
  Company Number: ACO_00653_2010

PATIENT
  Sex: Female
  Weight: 65.7716 kg

DRUGS (5)
  1. AMPYRA [Suspect]
     Indication: MULTIPLE SCLEROSIS
     Dosage: 10 MG BID ORAL
     Route: 048
     Dates: start: 20100306, end: 20100306
  2. NAMENDA [Concomitant]
  3. ARICEPT [Concomitant]
  4. SOLU-MEDROL [Concomitant]
  5. MULTI-VITAMIN [Concomitant]

REACTIONS (19)
  - COMMUNICATION DISORDER [None]
  - DEMENTIA [None]
  - ENCEPHALOPATHY [None]
  - FACIAL PALSY [None]
  - FALL [None]
  - FATIGUE [None]
  - GAIT DISTURBANCE [None]
  - GRIMACING [None]
  - HYPERGLYCAEMIA [None]
  - LOWER LIMB FRACTURE [None]
  - MULTIPLE SCLEROSIS RELAPSE [None]
  - MUSCULAR WEAKNESS [None]
  - PNEUMONIA ASPIRATION [None]
  - RESPIRATORY FAILURE [None]
  - STARING [None]
  - STATUS EPILEPTICUS [None]
  - TREMOR [None]
  - UNRESPONSIVE TO STIMULI [None]
  - URINARY TRACT INFECTION [None]
